FAERS Safety Report 20497576 (Version 3)
Quarter: 2022Q2

REPORT INFORMATION
  Report Type: Report from Study
  Country: MX (occurrence: MX)
  Receive Date: 20220221
  Receipt Date: 20220517
  Transmission Date: 20220721
  Serious: Yes (Other)
  Sender: FDA-Public Use
  Company Number: MX-NOVARTISPH-NVSC2022MX039580

PATIENT
  Sex: Male
  Weight: 56 kg

DRUGS (2)
  1. ENTRESTO [Suspect]
     Active Substance: SACUBITRIL\VALSARTAN
     Indication: Cardiac failure
     Dosage: 50 MG (1 DOSAGE FORM), BID
     Route: 048
     Dates: start: 201709
  2. ENTRESTO [Suspect]
     Active Substance: SACUBITRIL\VALSARTAN
     Dosage: 1 DOSAGE FORM, QD (50MG)
     Route: 048
     Dates: start: 201709

REACTIONS (2)
  - Cataract [Recovered/Resolved]
  - Inappropriate schedule of product administration [Unknown]
